FAERS Safety Report 6193583-5 (Version None)
Quarter: 2009Q2

REPORT INFORMATION
  Report Type: 
  Country: None (occurrence: None)
  Receive Date: 20090514
  Receipt Date: 20090430
  Transmission Date: 20091009
  Serious: Yes (Hospitalization)
  Sender: FDA-Public Use
  Company Number: 8046031

PATIENT
  Age: 25 Year
  Sex: Female

DRUGS (6)
  1. LEVETIRACETAM [Suspect]
     Indication: EPILEPSY
     Dosage: 4500 MG /D
  2. TRILEPTAL [Suspect]
     Indication: EPILEPSY
     Dosage: 2400 MG /D
  3. TOPAMAX [Suspect]
     Indication: EPILEPSY
     Dosage: 150 MG 2/D
  4. TOPAMAX [Suspect]
     Indication: EPILEPSY
     Dosage: 75 MG 2/D
     Dates: start: 20090105, end: 20090303
  5. TOPAMAX [Suspect]
     Indication: EPILEPSY
     Dosage: 50 MG 2/D
     Dates: start: 20090304, end: 20090424
  6. RUFINAMIDE [Suspect]
     Indication: EPILEPSY
     Dosage: 800 MG 2/D

REACTIONS (6)
  - CONDITION AGGRAVATED [None]
  - FATIGUE [None]
  - FEEDING DISORDER [None]
  - GRAND MAL CONVULSION [None]
  - PSYCHOMOTOR SEIZURES [None]
  - SPASTIC PARAPLEGIA [None]
